FAERS Safety Report 7770912-X (Version None)
Quarter: 2011Q3

REPORT INFORMATION
  Report Type: 
  Country: None (occurrence: None)
  Receive Date: 20110922
  Receipt Date: 20110204
  Transmission Date: 20111222
  Serious: Yes (Other)
  Sender: FDA-Public Use
  Company Number: US-ASTRAZENECA-2011SE04206

PATIENT
  Age: 50 Year
  Sex: Female

DRUGS (5)
  1. SEROQUEL [Suspect]
     Indication: BIPOLAR DISORDER
     Dosage: GENERIC
     Route: 048
  2. SEROQUEL [Suspect]
     Route: 048
     Dates: start: 20070101
  3. LAMICTAL [Concomitant]
     Route: 048
  4. TOPAMAX [Concomitant]
     Route: 048
  5. TEGRETOL [Concomitant]
     Route: 048

REACTIONS (4)
  - SUICIDAL IDEATION [None]
  - DRUG INEFFECTIVE [None]
  - DRUG DOSE OMISSION [None]
  - ANXIETY [None]
